FAERS Safety Report 9775008 (Version 1)
Quarter: 2013Q4

REPORT INFORMATION
  Report Type: Spontaneous
  Country: US (occurrence: None)
  Receive Date: 20131218
  Receipt Date: 20131218
  Transmission Date: 20140711
  Serious: Yes (Hospitalization)
  Sender: FDA-Public Use
  Company Number: 2069519

PATIENT
  Age: 70 Year
  Sex: Male

DRUGS (3)
  1. DILTIAZEM HYDROCHLORIDE [Suspect]
     Indication: ATRIAL FIBRILLATION
     Dosage: 20 MG MILLIGRAM(S), UNKNOWN, INTRAVENOUS
     Route: 040
  2. DILTIAZEM HYDROCHLORIDE [Suspect]
     Indication: ATRIAL FIBRILLATION
     Dosage: 20 MG MILLIGRAM(S), UNKNOWN, INTRAVENOUS
     Route: 040
  3. ENOXAPARIN [Concomitant]

REACTIONS (9)
  - Hepatitis [None]
  - Acute hepatic failure [None]
  - Renal failure acute [None]
  - Hypotension [None]
  - Thrombocytopenia [None]
  - Palpitations [None]
  - Diarrhoea [None]
  - Influenza like illness [None]
  - Tachypnoea [None]
